FAERS Safety Report 26153279 (Version 1)
Quarter: 2025Q4

REPORT INFORMATION
  Report Type: Report from Study
  Country: EU (occurrence: EU)
  Receive Date: 20251214
  Receipt Date: 20251214
  Transmission Date: 20260117
  Serious: Yes (Other)
  Sender: ABBVIE
  Company Number: EU-ABBVIE-6581106

PATIENT
  Age: 86 Year
  Sex: Male

DRUGS (15)
  1. FOSCARBIDOPA\FOSLEVODOPA [Suspect]
     Active Substance: FOSCARBIDOPA\FOSLEVODOPA
     Indication: Parkinson^s disease
     Dosage: 240 MG/ML + 12 MG/ML, LOADING DOSE: 2 ML; LOW DOSE: 0.42ML/HR; BASE DOSE: 0.60ML/HR; HIGH DOSE: 0...
     Route: 058
     Dates: start: 20251125, end: 20251202
  2. FOSCARBIDOPA\FOSLEVODOPA [Suspect]
     Active Substance: FOSCARBIDOPA\FOSLEVODOPA
     Dosage: 240 MG/ML + 12 MG/ML, LOADING DOSE: 2 ML; BASE DOSE: 0.60ML/HR; HIGH DOSE: 0.66 ML/H; EXTRA DOSE:...
     Route: 058
     Dates: start: 20251202, end: 20251205
  3. FOSCARBIDOPA\FOSLEVODOPA [Suspect]
     Active Substance: FOSCARBIDOPA\FOSLEVODOPA
     Dosage: CURRENT DOSES: BASE: 0.4CC/H; LOW: 0.4CC/H; HIGH: 0.7CC/H.?PERFUSION
     Route: 058
     Dates: start: 20251205
  4. SINEMET [Concomitant]
     Active Substance: CARBIDOPA\LEVODOPA
     Indication: Product used for unknown indication
     Dosage: PER OS IN SOS 25/100MG TWO TABLETS UPON WAKING AND ONE AND A HALF EVERY THREE HOURS DURING THE DAY
  5. MEMANTINE [Concomitant]
     Active Substance: MEMANTINE
     Indication: Product used for unknown indication
     Dosage: SINCE BEFORE DUODOPA, SMALL LUNCH
  6. LYRICA [Concomitant]
     Active Substance: PREGABALIN
     Indication: Product used for unknown indication
     Dosage: TIME INTERVAL: 0.33333333 DAYS: SINCE BEFORE DUODOPA
  7. GALANTAMINE [Concomitant]
     Active Substance: GALANTAMINE
     Indication: Product used for unknown indication
     Dosage: SINCE BEFORE DUODOPA. SMALL LUNCH
  8. MOVICOL [Concomitant]
     Active Substance: POLYETHYLENE GLYCOL 3350\POTASSIUM CHLORIDE\SODIUM BICARBONATE\SODIUM CHLORIDE
     Indication: Product used for unknown indication
     Dosage: SINCE BEFORE DUODOPA SMALL LUNCH AND LUNCH
  9. MIRABEGRON [Concomitant]
     Active Substance: MIRABEGRON
     Indication: Product used for unknown indication
     Dosage: SINCE BEFORE DUODOPA AT DINNER
  10. MIDODRINE HYDROCHLORIDE [Concomitant]
     Active Substance: MIDODRINE HYDROCHLORIDE
     Indication: Product used for unknown indication
     Dosage: SINCE BEFORE DUODOPA
  11. QUETIAPINE [Concomitant]
     Active Substance: QUETIAPINE
     Indication: Product used for unknown indication
     Dosage: SINCE BEFORE DUODOPA, AT BEDTIME
  12. PRAVASTATIN [Concomitant]
     Active Substance: PRAVASTATIN
     Indication: Product used for unknown indication
     Dosage: SINCE BEFORE DUODOPA, AT DINNER
  13. DUTASTERIDE [Concomitant]
     Active Substance: DUTASTERIDE
     Indication: Product used for unknown indication
     Dosage: SINCE BEFORE DUODOPA
  14. SINEMET CR [Concomitant]
     Active Substance: CARBIDOPA\LEVODOPA
     Indication: Product used for unknown indication
     Dosage: STARTED SINCE BEFORE DUODOPA
  15. ASPIRIN [Concomitant]
     Active Substance: ASPIRIN
     Indication: Product used for unknown indication

REACTIONS (5)
  - Skin laceration [Not Recovered/Not Resolved]
  - Akinesia [Recovering/Resolving]
  - Off label use [Recovered/Resolved]
  - On and off phenomenon [Recovering/Resolving]
  - Fall [Recovered/Resolved]

NARRATIVE: CASE EVENT DATE: 20251127
